FAERS Safety Report 6522208-1 (Version None)
Quarter: 2009Q4

REPORT INFORMATION
  Report Type: 
  Country: None (occurrence: None)
  Receive Date: 20091214
  Receipt Date: 20090909
  Transmission Date: 20100525
  Serious: Yes (Other)
  Sender: FDA-Public Use
  Company Number: 655718

PATIENT
  Age: 43 Year
  Sex: Female

DRUGS (2)
  1. PEGASYS [Suspect]
     Indication: HEPATITIS C
     Dosage: 180 UG 1 PER 1 WEEK
     Dates: start: 20090811
  2. COPEGUS [Suspect]
     Indication: HEPATITIS C
     Dosage: 1200 MG DAILY
     Dates: start: 20090811

REACTIONS (7)
  - BLISTER [None]
  - DIABETES MELLITUS INADEQUATE CONTROL [None]
  - FATIGUE [None]
  - PAIN [None]
  - POLLAKIURIA [None]
  - SKIN INFECTION [None]
  - URINARY TRACT INFECTION [None]
